FAERS Safety Report 10550775 (Version 1)
Quarter: 2014Q4

REPORT INFORMATION
  Report Type: Spontaneous
  Country: US (occurrence: None)
  Receive Date: 20141028
  Receipt Date: 20141028
  Transmission Date: 20150529
  Serious: Yes (Life-Threatening, Hospitalization, Disabling, Other)
  Sender: FDA-Public Use
  Company Number: None

PATIENT
  Age: 53 Year
  Sex: Female
  Weight: 68.04 kg

DRUGS (1)
  1. TALCUM POWDER SHOWER TO SHOWER JOHNSON AND JOHNSON [Suspect]
     Active Substance: BICARBONATE ION\POLYSACCHARIDES\STARCH\TALC
     Indication: THERAPEUTIC SKIN CARE TOPICAL

REACTIONS (1)
  - Ovarian cancer stage III [None]
